FAERS Safety Report 8550888-8 (Version None)
Quarter: 2012Q3

REPORT INFORMATION
  Report Type: 
  Country: None (occurrence: None)
  Receive Date: 20120730
  Receipt Date: 20120308
  Transmission Date: 20120928
  Serious: No
  Sender: FDA-Public Use
  Company Number: US-GLAXOSMITHKLINE-A0969144A

PATIENT
  Age: 47 Year
  Sex: Female

DRUGS (5)
  1. ZANTAC [Suspect]
     Dates: start: 20100301
  2. ALBUTEROL [Suspect]
     Indication: ASTHMA
     Route: 055
  3. ALBUTEROL [Concomitant]
  4. ZANTAC [Suspect]
     Indication: GASTROOESOPHAGEAL REFLUX DISEASE
     Dosage: 75TAB PER DAY
     Route: 048
     Dates: start: 20050301, end: 20100301
  5. ALBUTEROL [Concomitant]

REACTIONS (5)
  - SALIVARY HYPERSECRETION [None]
  - DRUG INEFFECTIVE [None]
  - HYPERSENSITIVITY [None]
  - DRY MOUTH [None]
  - TOOTH EROSION [None]
